FAERS Safety Report 19949995 (Version 1)
Quarter: 2021Q4

REPORT INFORMATION
  Report Type: Spontaneous
  Country: US (occurrence: US)
  Receive Date: 20211013
  Receipt Date: 20211013
  Transmission Date: 20220303
  Serious: No
  Sender: FDA-Public Use
  Company Number: None

PATIENT
  Age: 36 Year
  Sex: Female
  Weight: 55.35 kg

DRUGS (3)
  1. MINOCYCLINE [Suspect]
     Active Substance: MINOCYCLINE HYDROCHLORIDE
     Indication: Perioral dermatitis
     Dosage: ?          QUANTITY:1 TABLET(S);
     Route: 048
     Dates: start: 20211008
  2. MULTIVITAMIN (ONE-A-DAY) [Concomitant]
  3. TRI SPRINTEC BIRTH CONTROL PILLS [Concomitant]

REACTIONS (8)
  - Depersonalisation/derealisation disorder [None]
  - Confusional state [None]
  - Agitation [None]
  - Aggression [None]
  - Nausea [None]
  - Abdominal pain upper [None]
  - Feeling abnormal [None]
  - Anxiety [None]

NARRATIVE: CASE EVENT DATE: 20211009
